FAERS Safety Report 5675344-6 (Version None)
Quarter: 2008Q1

REPORT INFORMATION
  Report Type: 
  Country: None (occurrence: None)
  Receive Date: 20080320
  Receipt Date: 20080226
  Transmission Date: 20080703
  Serious: No
  Sender: FDA-Public Use
  Company Number: US-BOEHRINGER INGELHEIM GMBH, GERMANY-2007-BP-26160BP

PATIENT
  Sex: Male

DRUGS (6)
  1. FLOMAX [Suspect]
     Indication: BENIGN PROSTATIC HYPERPLASIA
     Route: 048
     Dates: start: 20071127, end: 20071205
  2. FLOMAX [Suspect]
     Indication: PROSTATOMEGALY
  3. ANTIHYPERTENSIVE [Concomitant]
     Indication: HYPERTENSION
  4. BENAZEPRIL HYDROCHLORIDE [Concomitant]
  5. ASPIRIN [Concomitant]
  6. GLUCOSAMINE/MSM [Concomitant]

REACTIONS (2)
  - HEART RATE INCREASED [None]
  - INFLUENZA LIKE ILLNESS [None]
